FAERS Safety Report 6620082-6 (Version None)
Quarter: 2010Q1

REPORT INFORMATION
  Report Type: 
  Country: None (occurrence: None)
  Receive Date: 20100309
  Receipt Date: 20100225
  Transmission Date: 20100710
  Serious: Yes (Other)
  Sender: FDA-Public Use
  Company Number: US-ROCHE-688106

PATIENT
  Sex: Female

DRUGS (1)
  1. BONIVA [Suspect]
     Indication: OSTEOPENIA
     Dosage: DATES OF USE REPORTED AS 3 YEARS
     Route: 048

REACTIONS (3)
  - STOMATITIS [None]
  - TOOTH EXTRACTION [None]
  - TOOTHACHE [None]
